FAERS Safety Report 7672927-9 (Version None)
Quarter: 2011Q3

REPORT INFORMATION
  Report Type: 
  Country: None (occurrence: None)
  Receive Date: 20110809
  Receipt Date: 20110803
  Transmission Date: 20111222
  Serious: Yes (Other)
  Sender: FDA-Public Use
  Company Number: PHEH2010US03392

PATIENT
  Sex: Female

DRUGS (1)
  1. ZELNORM [Suspect]
     Indication: IRRITABLE BOWEL SYNDROME
     Route: 048
     Dates: start: 20070301

REACTIONS (7)
  - CHEST DISCOMFORT [None]
  - HYPERTENSION [None]
  - CARDIAC DISORDER [None]
  - INJURY [None]
  - COUGH [None]
  - EAR PAIN [None]
  - CHEST PAIN [None]
